FAERS Safety Report 7433208-1 (Version None)
Quarter: 2011Q2

REPORT INFORMATION
  Report Type: 
  Country: None (occurrence: None)
  Receive Date: 20110422
  Receipt Date: 20110418
  Transmission Date: 20111010
  Serious: Yes (Life-Threatening, Hospitalization)
  Sender: FDA-Public Use
  Company Number: PHHO2005DE16194

PATIENT
  Sex: Male

DRUGS (8)
  1. PRAVASTATIN [Concomitant]
     Indication: HYPERCHOLESTEROLAEMIA
  2. CAPTOPRIL [Concomitant]
     Indication: HYPERTENSION
     Dates: end: 20041129
  3. TORSEMIDE [Concomitant]
     Indication: HYPERTENSION
  4. AMN107 [Suspect]
     Indication: CHRONIC MYELOID LEUKAEMIA
     Dosage: 400 MG, BID
     Route: 048
     Dates: start: 20040629
  5. OMACOR [Concomitant]
     Indication: PROPHYLAXIS
  6. NEBIVOLOL HCL [Concomitant]
     Indication: ACUTE CORONARY SYNDROME
  7. ACETYLSALICYLIC ACID SRT [Concomitant]
     Indication: VENTRICULAR EXTRASYSTOLES
     Dates: end: 20050912
  8. LORZAAR [Concomitant]
     Indication: HYPERTENSION
     Dates: end: 20051010

REACTIONS (14)
  - FEMORAL ARTERIAL STENOSIS [None]
  - VENTRICULAR FIBRILLATION [None]
  - ACUTE CORONARY SYNDROME [None]
  - ARTERIOSCLEROSIS [None]
  - PERIPHERAL ARTERIAL OCCLUSIVE DISEASE [None]
  - GAIT DISTURBANCE [None]
  - ARTERIOSCLEROSIS CORONARY ARTERY [None]
  - ILIAC ARTERY STENOSIS [None]
  - CORONARY ARTERY STENOSIS [None]
  - ANGINA PECTORIS [None]
  - ARTERIAL STENOSIS [None]
  - AORTIC ARTERIOSCLEROSIS [None]
  - CORONARY ARTERY DISEASE [None]
  - CHEST PAIN [None]
